FAERS Safety Report 4721458-4 (Version None)
Quarter: 2005Q3

REPORT INFORMATION
  Report Type: 
  Country: None (occurrence: None)
  Receive Date: 20050721
  Receipt Date: 20040921
  Transmission Date: 20060218
  Serious: No
  Sender: FDA-Public Use
  Company Number: US-BRISTOL-MYERS SQUIBB COMPANY-12708301

PATIENT
  Age: 63 Year
  Sex: Female
  Weight: 61 kg

DRUGS (7)
  1. COUMADIN [Suspect]
     Indication: THROMBOPHLEBITIS SUPERFICIAL
     Dosage: START 5MG QD; PRESENT DAILY DOSAGE WAS 10MG, 10MG, 5MG, REPEATED.
     Route: 048
     Dates: start: 20040823
  2. WELLBUTRIN [Interacting]
     Indication: DEPRESSION
     Route: 048
     Dates: start: 20040804
  3. ZYPREXA [Concomitant]
  4. EFFEXOR [Concomitant]
  5. KLONOPIN [Concomitant]
  6. MULTI-VITAMIN [Concomitant]
  7. PLAVIX [Concomitant]
     Dosage: PREVIOUSLY ON RX

REACTIONS (2)
  - DRUG INTERACTION [None]
  - INTERNATIONAL NORMALISED RATIO DECREASED [None]
